FAERS Safety Report 25836552 (Version 1)
Quarter: 2025Q3

REPORT INFORMATION
  Report Type: Spontaneous
  Country: CA (occurrence: CA)
  Receive Date: 20250923
  Receipt Date: 20250923
  Transmission Date: 20251020
  Serious: Yes (Other)
  Sender: AUROBINDO
  Company Number: CA-AUROBINDO-AUR-APL-2025-048487

PATIENT

DRUGS (2)
  1. TRANEXAMIC ACID [Suspect]
     Active Substance: TRANEXAMIC ACID
     Indication: Product used for unknown indication
     Route: 064
  2. OXYGEN [Suspect]
     Active Substance: OXYGEN
     Indication: Product used for unknown indication
     Route: 064

REACTIONS (2)
  - Premature baby [Unknown]
  - Maternal exposure during pregnancy [Unknown]
